FAERS Safety Report 7230427-4 (Version None)
Quarter: 2011Q1

REPORT INFORMATION
  Report Type: 
  Country: None (occurrence: None)
  Receive Date: 20110118
  Receipt Date: 20101130
  Transmission Date: 20110831
  Serious: Yes (Hospitalization, Other)
  Sender: FDA-Public Use
  Company Number: US-BAYER-201025957NA

PATIENT
  Sex: Female
  Weight: 68 kg

DRUGS (2)
  1. YAZ [Suspect]
     Indication: CONTRACEPTION
     Dosage: 1 TAB/DAY
     Route: 048
     Dates: start: 20090301, end: 20090826
  2. OMEPRAZOLE [Concomitant]
     Indication: NAUSEA
     Dosage: UNK
     Dates: start: 20080101, end: 20090101

REACTIONS (5)
  - CHOLECYSTITIS [None]
  - VOMITING [None]
  - ABDOMINAL PAIN [None]
  - NAUSEA [None]
  - ABDOMINAL DISTENSION [None]
